FAERS Safety Report 6267147-9 (Version None)
Quarter: 2009Q3

REPORT INFORMATION
  Report Type: 
  Country: None (occurrence: None)
  Receive Date: 20090714
  Receipt Date: 20090706
  Transmission Date: 20100115
  Serious: Yes (Other)
  Sender: FDA-Public Use
  Company Number: US-ASTRAZENECA-2009UW18662

PATIENT
  Age: 96 Year
  Sex: Female
  Weight: 54.4 kg

DRUGS (3)
  1. ARIMIDEX [Suspect]
     Route: 048
  2. FOSAMAX [Concomitant]
     Indication: OSTEOPOROSIS
  3. BLOOD PRESSURE MEDICATION [Concomitant]

REACTIONS (4)
  - ALOPECIA [None]
  - ASTHENIA [None]
  - CARDIAC PACEMAKER INSERTION [None]
  - DYSPNOEA [None]
